FAERS Safety Report 15351859 (Version 3)
Quarter: 2018Q3

REPORT INFORMATION
  Report Type: Spontaneous
  Country: DE (occurrence: DE)
  Receive Date: 20180905
  Receipt Date: 20180919
  Transmission Date: 20181010
  Serious: Yes (Hospitalization, Other)
  Sender: FDA-Public Use
  Company Number: DE-PFIZER INC-2018356626

PATIENT
  Age: 75 Year
  Sex: Female
  Weight: 58 kg

DRUGS (1)
  1. AMIODARONE HCL [Suspect]
     Active Substance: AMIODARONE HYDROCHLORIDE
     Indication: CARDIAC DISORDER
     Dosage: 200 MG, QD
     Route: 065

REACTIONS (2)
  - Blood creatinine increased [Unknown]
  - Drug intolerance [Unknown]

NARRATIVE: CASE EVENT DATE: 20180108
